FAERS Safety Report 9096645 (Version 1)
Quarter: 2013Q1

REPORT INFORMATION
  Report Type: Spontaneous
  Country: US (occurrence: None)
  Receive Date: 20130124
  Receipt Date: 20130124
  Transmission Date: 20140127
  Serious: Yes (Other)
  Sender: FDA-Public Use
  Company Number: AMAG201300009

PATIENT
  Age: 75 Year
  Sex: Male
  Weight: 102.5 kg

DRUGS (12)
  1. FERAHEME (FERUMOXYTOL) INJECTION, 510MG [Suspect]
     Indication: NEPHROGENIC ANAEMIA
     Route: 042
     Dates: start: 20121213, end: 20121213
  2. ACTOS (PIOGLITAZONE HYDROCHLORIDE) [Concomitant]
  3. ASPIRIN (ACETYLSALICYLIC ACID) [Concomitant]
  4. CARVEDILOL (CARVEDILOL) [Concomitant]
  5. VITAMIN D2 (VITAMIN D2) [Concomitant]
  6. GLIMEPIRIDE (GLIMEPIRIDE) [Concomitant]
  7. LASIX (FUROSEMIDE SODIUM) [Concomitant]
  8. NIFEDIPINE (NIFEDIPINE) [Concomitant]
  9. PAROXETINE (PAROXETINE HYDROCHLORIDE) [Concomitant]
  10. RESTASIS (CICLOSPORIN) [Concomitant]
  11. TRAMADOL (TRAMADOL HYDROCHLORIDE) [Concomitant]
  12. PROCRIT [Concomitant]

REACTIONS (3)
  - Hypersensitivity [None]
  - Blood pressure decreased [None]
  - Hyperhidrosis [None]
